FAERS Safety Report 8862340 (Version 3)
Quarter: 2012Q4

REPORT INFORMATION
  Report Type: 
  Country: US (occurrence: US)
  Receive Date: 20121026
  Receipt Date: 20121226
  Transmission Date: 20130627
  Serious: No
  Sender: FDA-Public Use
  Company Number: US-VERTEX PHARMACEUTICAL INC.-2012-023476

PATIENT
  Sex: Male
  Weight: 98 kg

DRUGS (4)
  1. VX-950 (TELAPREVIR) [Suspect]
     Indication: HEPATITIS C
     Dosage: 750 mg, tid
     Route: 048
     Dates: start: 2012
  2. RIBASPHERE [Suspect]
     Indication: HEPATITIS C
     Dosage: 600 mg AM, 400 mg PM, qd
     Dates: start: 2012
  3. RIBASPHERE [Suspect]
     Dosage: 600 mg, qd
     Route: 048
     Dates: start: 201212
  4. PEGASYS [Suspect]
     Indication: HEPATITIS C
     Dosage: 180 ?g, qw
     Route: 058
     Dates: start: 2012

REACTIONS (10)
  - Influenza like illness [Unknown]
  - Chills [Unknown]
  - Insomnia [Unknown]
  - Decreased appetite [Unknown]
  - Fatigue [Unknown]
  - Rash pruritic [Unknown]
  - Red blood cell count decreased [Unknown]
  - Gout [Unknown]
  - Rectal haemorrhage [Unknown]
  - Anorectal discomfort [Unknown]
